FAERS Safety Report 24798666 (Version 1)
Quarter: 2025Q1

REPORT INFORMATION
  Report Type: Spontaneous
  Country: US (occurrence: US)
  Receive Date: 20250102
  Receipt Date: 20250102
  Transmission Date: 20250409
  Serious: Yes (Death, Other)
  Sender: ALKEM
  Company Number: US-ALKEM LABORATORIES LIMITED-US-ALKEM-2023-16220

PATIENT
  Age: 14 Year
  Sex: Female

DRUGS (5)
  1. TACROLIMUS [Suspect]
     Active Substance: TACROLIMUS
     Indication: Prophylaxis against graft versus host disease
     Route: 065
  2. CYCLOSPORINE [Suspect]
     Active Substance: CYCLOSPORINE
     Indication: Prophylaxis against graft versus host disease
     Route: 065
  3. CYCLOPHOSPHAMIDE [Suspect]
     Active Substance: CYCLOPHOSPHAMIDE
     Indication: Immunosuppressant drug therapy
     Route: 065
  4. FLUDARABINE [Suspect]
     Active Substance: FLUDARABINE PHOSPHATE
     Indication: Immunosuppressant drug therapy
     Route: 065
  5. MELPHALAN [Suspect]
     Active Substance: MELPHALAN
     Indication: Immunosuppressant drug therapy
     Route: 065

REACTIONS (5)
  - Disseminated toxoplasmosis [Fatal]
  - Pericardial effusion [Unknown]
  - Acute graft versus host disease [Unknown]
  - Rhinovirus infection [Unknown]
  - Respiratory tract infection [Unknown]
